FAERS Safety Report 18272056 (Version 1)
Quarter: 2020Q3

REPORT INFORMATION
  Report Type: Spontaneous
  Country: US (occurrence: US)
  Receive Date: 20200915
  Receipt Date: 20200915
  Transmission Date: 20201103
  Serious: No
  Sender: FDA-Public Use
  Company Number: None

PATIENT
  Age: 31 Year
  Sex: Female
  Weight: 74.84 kg

DRUGS (2)
  1. PROAIR HFA [Suspect]
     Active Substance: ALBUTEROL SULFATE
     Indication: ASTHMA
     Dosage: ?          OTHER DOSE:PRO AIR;OTHER FREQUENCY:PRN;OTHER ROUTE:INHALATION?
     Dates: start: 20200720, end: 20200914
  2. ALBUTEROL INHALER [Suspect]
     Active Substance: ALBUTEROL

REACTIONS (3)
  - Product taste abnormal [None]
  - Palpitations [None]
  - Dizziness [None]

NARRATIVE: CASE EVENT DATE: 20200913
